FAERS Safety Report 16805335 (Version 4)
Quarter: 2020Q3

REPORT INFORMATION
  Report Type: Spontaneous
  Country: US (occurrence: US)
  Receive Date: 20190913
  Receipt Date: 20200923
  Transmission Date: 20201102
  Serious: Yes (Other)
  Sender: FDA-Public Use
  Company Number: US-ASTRAZENECA-2019SF28516

PATIENT
  Age: 78 Year
  Sex: Female
  Weight: 86.2 kg

DRUGS (4)
  1. BYETTA [Suspect]
     Active Substance: EXENATIDE
     Indication: TYPE 2 DIABETES MELLITUS
     Dosage: 10.0UG UNKNOWN
     Route: 065
  2. BYETTA [Suspect]
     Active Substance: EXENATIDE
     Indication: TYPE 2 DIABETES MELLITUS
     Dosage: 5.0UG UNKNOWN
     Route: 065
  3. BYDUREON BCISE [Suspect]
     Active Substance: EXENATIDE
     Indication: INSULIN-REQUIRING TYPE 2 DIABETES MELLITUS
     Dosage: 2.0MG UNKNOWN
     Route: 058
     Dates: start: 20190809
  4. OLMESARTAN [Concomitant]
     Active Substance: OLMESARTAN
     Indication: BLOOD PRESSURE ABNORMAL
     Route: 048

REACTIONS (22)
  - Urticaria [Recovered/Resolved]
  - Drug ineffective [Unknown]
  - Incorrect dose administered [Unknown]
  - Head injury [Recovered/Resolved]
  - Headache [Recovered/Resolved]
  - Device leakage [Unknown]
  - Malaise [Unknown]
  - Cerebrovascular accident [Recovered/Resolved with Sequelae]
  - Memory impairment [Unknown]
  - Muscle spasms [Recovered/Resolved]
  - Blood glucose abnormal [Unknown]
  - Weight fluctuation [Recovered/Resolved]
  - Oral discomfort [Recovered/Resolved]
  - Thyroid disorder [Recovered/Resolved]
  - Intentional device misuse [Recovered/Resolved]
  - Fall [Recovered/Resolved]
  - Swollen tongue [Recovered/Resolved]
  - Lip swelling [Recovered/Resolved]
  - Anger [Unknown]
  - Nausea [Recovered/Resolved]
  - Rash macular [Recovered/Resolved]
  - Incorrect dose administered by device [Recovered/Resolved]

NARRATIVE: CASE EVENT DATE: 2019
